FAERS Safety Report 13676343 (Version 1)
Quarter: 2017Q2

REPORT INFORMATION
  Report Type: Spontaneous
  Country: US (occurrence: US)
  Receive Date: 20170622
  Receipt Date: 20170622
  Transmission Date: 20170830
  Serious: No
  Sender: FDA-Public Use
  Company Number: US-BIOGEN-2017BI00418850

PATIENT
  Sex: Male

DRUGS (2)
  1. AVONEX [Suspect]
     Active Substance: INTERFERON BETA-1A
     Indication: MULTIPLE SCLEROSIS
     Route: 030
  2. LISINOPRIL. [Concomitant]
     Active Substance: LISINOPRIL
     Indication: MULTIPLE SCLEROSIS
     Route: 065

REACTIONS (2)
  - Underdose [Recovered/Resolved]
  - Injection site extravasation [Unknown]
